FAERS Safety Report 17161224 (Version 2)
Quarter: 2020Q1

REPORT INFORMATION
  Report Type: Report from Study
  Country: US (occurrence: US)
  Receive Date: 20191216
  Receipt Date: 20200227
  Transmission Date: 20200409
  Serious: Yes (Other)
  Sender: FDA-Public Use
  Company Number: NVSC2019US069812

PATIENT
  Sex: Female

DRUGS (1)
  1. COSENTYX [Suspect]
     Active Substance: SECUKINUMAB
     Indication: PSORIASIS
     Dosage: UNK
     Route: 065

REACTIONS (5)
  - Respiratory tract infection [Recovering/Resolving]
  - Enlarged uvula [Unknown]
  - Dysgeusia [Recovering/Resolving]
  - Sinusitis [Recovering/Resolving]
  - Dysphonia [Recovering/Resolving]
